FAERS Safety Report 9445549 (Version 1)
Quarter: 2013Q3

REPORT INFORMATION
  Report Type: Spontaneous
  Country: US (occurrence: US)
  Receive Date: 20130807
  Receipt Date: 20130807
  Transmission Date: 20140515
  Serious: No
  Sender: FDA-Public Use
  Company Number: US-PFIZER INC-2013224255

PATIENT
  Age: 76 Year
  Sex: Female

DRUGS (2)
  1. LATANOPROST [Suspect]
     Dosage: UNK
  2. TIMOLOL [Suspect]
     Dosage: UNK

REACTIONS (3)
  - Pruritus [Unknown]
  - Formication [Unknown]
  - Cataract [Unknown]
